FAERS Safety Report 23462618 (Version 3)
Quarter: 2025Q3

REPORT INFORMATION
  Report Type: Spontaneous
  Country: US (occurrence: US)
  Receive Date: 20240131
  Receipt Date: 20250915
  Transmission Date: 20251021
  Serious: Yes (Other)
  Sender: INCYTE
  Company Number: US-INCYTE CORPORATION-2024IN000800

PATIENT
  Age: 91 Year
  Weight: 78.912 kg

DRUGS (2)
  1. JAKAFI [Suspect]
     Active Substance: RUXOLITINIB
     Indication: Essential thrombocythaemia
     Dosage: 5 MILLIGRAM, BID
  2. JAKAFI [Suspect]
     Active Substance: RUXOLITINIB
     Dosage: 5 MILLIGRAM, BID

REACTIONS (8)
  - Hip fracture [Not Recovered/Not Resolved]
  - Joint injury [Unknown]
  - Sinus disorder [Unknown]
  - Decreased activity [Unknown]
  - General physical health deterioration [Unknown]
  - Musculoskeletal disorder [Unknown]
  - Off label use [Unknown]
  - Product dose omission issue [Unknown]
